FAERS Safety Report 5587087-8 (Version None)
Quarter: 2008Q1

REPORT INFORMATION
  Report Type: 
  Country: None (occurrence: None)
  Receive Date: 20080110
  Receipt Date: 20080104
  Transmission Date: 20080703
  Serious: Yes (Disabling, Other)
  Sender: FDA-Public Use
  Company Number: US-SANOFI-SYNTHELABO-A03200706085

PATIENT
  Age: 88 Year
  Sex: Male

DRUGS (2)
  1. PLAVIX [Suspect]
     Indication: DRUG USE FOR UNKNOWN INDICATION
     Route: 048
     Dates: start: 20070522, end: 20070522
  2. PLAVIX [Suspect]
     Route: 048
     Dates: start: 20070523, end: 20070523

REACTIONS (15)
  - ARTHRALGIA [None]
  - ASTHENIA [None]
  - CONCUSSION [None]
  - DIZZINESS [None]
  - FAECES DISCOLOURED [None]
  - FALL [None]
  - FATIGUE [None]
  - GASTRIC HAEMORRHAGE [None]
  - HAEMATOCHEZIA [None]
  - HAEMOGLOBIN DECREASED [None]
  - HEADACHE [None]
  - MUSCLE CONTRACTURE [None]
  - OVERDOSE [None]
  - PAIN [None]
  - PARALYSIS [None]
